FAERS Safety Report 24315133 (Version 1)
Quarter: 2024Q3

REPORT INFORMATION
  Report Type: Spontaneous
  Country: DK (occurrence: None)
  Receive Date: 20240913
  Receipt Date: 20240913
  Transmission Date: 20241017
  Serious: Yes (Hospitalization)
  Sender: ORION
  Company Number: DK-MLMSERVICE-20240903-PI182349-00218-1

PATIENT
  Age: 8 Decade
  Sex: Male

DRUGS (1)
  1. METHOTREXATE [Suspect]
     Active Substance: METHOTREXATE
     Indication: Rheumatoid arthritis

REACTIONS (7)
  - Tibia fracture [Recovered/Resolved]
  - Femur fracture [Recovered/Resolved]
  - Patella fracture [Recovered/Resolved]
  - Stress fracture [Recovered/Resolved]
  - Foot fracture [Recovered/Resolved]
  - Osteoporosis [Recovered/Resolved]
  - Fall [Unknown]

NARRATIVE: CASE EVENT DATE: 20220101
